FAERS Safety Report 5441432-2 (Version None)
Quarter: 2007Q3

REPORT INFORMATION
  Report Type: 
  Country: None (occurrence: None)
  Receive Date: 20070828
  Receipt Date: 20070828
  Transmission Date: 20080115
  Serious: Yes (Hospitalization)
  Sender: FDA-Public Use
  Company Number: None

PATIENT
  Age: 22 Year
  Sex: Female
  Weight: 39.9165 kg

DRUGS (8)
  1. BEVACIZUMAB 7.5 [Suspect]
     Indication: ILL-DEFINED DISORDER
     Dosage: 7.5 MG EVERY 21 DAYS IV
     Route: 042
     Dates: start: 20070815, end: 20070825
  2. DOCETAXEL 70 [Suspect]
     Indication: ILL-DEFINED DISORDER
     Dosage: 70 MG EVERY 21 DAYS IV
     Route: 042
     Dates: start: 20070815, end: 20070825
  3. OXALIPLATIN [Suspect]
     Indication: ILL-DEFINED DISORDER
     Dosage: 75 MG EVERY 21 DAYS IV
     Route: 042
     Dates: start: 20070815, end: 20070825
  4. LIQUID TYLENOL [Concomitant]
  5. ENSURE [Concomitant]
  6. COLACE [Concomitant]
  7. SALINE RINSE [Concomitant]
  8. MAGIC MOUTHWASH [Concomitant]

REACTIONS (1)
  - FEBRILE NEUTROPENIA [None]
